FAERS Safety Report 9218901 (Version 1)
Quarter: 2013Q2

REPORT INFORMATION
  Report Type: Spontaneous
  Country: US (occurrence: None)
  Receive Date: 20130405
  Receipt Date: 20130405
  Transmission Date: 20140414
  Serious: Yes (Life-Threatening, Hospitalization, Disabling, Other)
  Sender: FDA-Public Use
  Company Number: None

PATIENT
  Age: 71 Year
  Sex: Female
  Weight: 113.4 kg

DRUGS (2)
  1. Z PACK [Suspect]
     Indication: PNEUMONIA
     Dates: start: 201301, end: 201302
  2. Z PACK [Suspect]
     Indication: INFLUENZA
     Dates: start: 201301, end: 201302

REACTIONS (2)
  - Cardiac disorder [None]
  - Atrial fibrillation [None]
